FAERS Safety Report 6576545-5 (Version None)
Quarter: 2010Q1

REPORT INFORMATION
  Report Type: 
  Country: None (occurrence: None)
  Receive Date: 20100210
  Receipt Date: 20100129
  Transmission Date: 20100710
  Serious: Yes (Disabling)
  Sender: FDA-Public Use
  Company Number: FR-BAYER-200943679GPV

PATIENT
  Age: 38 Year
  Sex: Female
  Weight: 63 kg

DRUGS (1)
  1. YASMIN [Suspect]
     Indication: OOCYTE DONATION
     Route: 048
     Dates: start: 20091126, end: 20091223

REACTIONS (5)
  - ACCOMMODATION DISORDER [None]
  - HEADACHE [None]
  - READING DISORDER [None]
  - STRABISMUS [None]
  - VISUAL IMPAIRMENT [None]
